FAERS Safety Report 7645878-3 (Version None)
Quarter: 2011Q3

REPORT INFORMATION
  Report Type: 
  Country: None (occurrence: None)
  Receive Date: 20110729
  Receipt Date: 20110725
  Transmission Date: 20111222
  Serious: Yes (Death)
  Sender: FDA-Public Use
  Company Number: CN-ASTRAZENECA-2011SE43339

PATIENT
  Age: 26 Year
  Sex: Female

DRUGS (1)
  1. LIDOCAINE [Suspect]
     Indication: LOCAL ANAESTHESIA
     Dosage: 1400 MG
     Route: 053

REACTIONS (3)
  - OVERDOSE [None]
  - CONVULSION [None]
  - TOXICITY TO VARIOUS AGENTS [None]
